FAERS Safety Report 6399149-6 (Version None)
Quarter: 2009Q4

REPORT INFORMATION
  Report Type: 
  Country: None (occurrence: None)
  Receive Date: 20091008
  Receipt Date: 20090923
  Transmission Date: 20100525
  Serious: Yes (Hospitalization)
  Sender: FDA-Public Use
  Company Number: CTI_01065_2009

PATIENT
  Sex: Female
  Weight: 56.246 kg

DRUGS (4)
  1. HYOSCYAMINE SULFATE 0.375 MG [Suspect]
     Indication: ABDOMINAL PAIN
     Dosage: 0.375 MG ORAL
     Route: 048
     Dates: start: 20090615, end: 20090623
  2. HYOSCYAMINE SULFATE 0.375 MG [Suspect]
     Indication: IRRITABLE BOWEL SYNDROME
     Dosage: 0.375 MG ORAL
     Route: 048
     Dates: start: 20090615, end: 20090623
  3. AMOXICILLIN [Concomitant]
  4. IBUPROFEN [Concomitant]

REACTIONS (5)
  - BLOOD PRESSURE DECREASED [None]
  - DIZZINESS [None]
  - DRY MOUTH [None]
  - EYE PAIN [None]
  - HYPOHIDROSIS [None]
